FAERS Safety Report 12835107 (Version 1)
Quarter: 2016Q4

REPORT INFORMATION
  Report Type: Spontaneous
  Country: US (occurrence: US)
  Receive Date: 20161010
  Receipt Date: 20161010
  Transmission Date: 20170207
  Serious: Yes (Death)
  Sender: FDA-Public Use
  Company Number: US-ROCHE-1840519

PATIENT
  Age: 80 Year
  Sex: Female

DRUGS (1)
  1. RITUXAN [Suspect]
     Active Substance: RITUXIMAB
     Indication: RHEUMATOID ARTHRITIS
     Dosage: ONE GRAM INFUSED ON DAY 1 AND DAY 15
     Route: 042
     Dates: start: 201506, end: 201602

REACTIONS (1)
  - Death [Fatal]
